FAERS Safety Report 9265335 (Version 1)
Quarter: 2013Q2

REPORT INFORMATION
  Report Type: Report from Study
  Country: US (occurrence: US)
  Receive Date: 20130501
  Receipt Date: 20130501
  Transmission Date: 20140414
  Serious: Yes (Other)
  Sender: FDA-Public Use
  Company Number: US-ROCHE-1218196

PATIENT
  Sex: Male

DRUGS (3)
  1. RITUXAN [Suspect]
     Indication: WALDENSTROM^S MACROGLOBULINAEMIA
     Route: 042
     Dates: start: 201106
  2. RITUXAN [Suspect]
     Route: 042
     Dates: start: 201110
  3. RITUXAN [Suspect]
     Route: 042
     Dates: start: 201112

REACTIONS (5)
  - Chills [Unknown]
  - Feeling hot [Unknown]
  - Heart rate decreased [Unknown]
  - Fatigue [Unknown]
  - Malaise [Unknown]
